FAERS Safety Report 15556688 (Version 1)
Quarter: 2018Q4

REPORT INFORMATION
  Report Type: Spontaneous
  Country: FR (occurrence: FR)
  Receive Date: 20181026
  Receipt Date: 20181026
  Transmission Date: 20190205
  Serious: Yes (Death)
  Sender: FDA-Public Use
  Company Number: FR-SAKK-2018SA294177AA

PATIENT
  Age: 62 Year
  Sex: Male
  Weight: 95 kg

DRUGS (27)
  1. PIPERACILLINE [PIPERACILLIN SODIUM] [Concomitant]
  2. TOPALGIC (SUPROFEN) [Concomitant]
     Active Substance: SUPROFEN
  3. SALBUTAMOL [Concomitant]
     Active Substance: ALBUTEROL
  4. KARDEGIC [Concomitant]
     Active Substance: ASPIRIN DL-LYSINE
  5. BIONOLYTE GLUCOSE [Concomitant]
  6. IPRATROPIUM BROMIDE MONOHYDRATE [Concomitant]
     Active Substance: IPRATROPIUM BROMIDE
  7. TAZOBACTAM [Concomitant]
     Active Substance: TAZOBACTAM
  8. METFORMINE ZENTIVA [Suspect]
     Active Substance: METFORMIN HYDROCHLORIDE
     Indication: TYPE 2 DIABETES MELLITUS
     Dosage: 2550 MG, QD
     Route: 048
  9. CLAMOXYL [AMOXICILLIN] [Concomitant]
     Active Substance: AMOXICILLIN
  10. SPIRONOLACTONE. [Suspect]
     Active Substance: SPIRONOLACTONE
     Indication: PRODUCT USED FOR UNKNOWN INDICATION
     Route: 048
  11. SPIRONOLACTONE. [Suspect]
     Active Substance: SPIRONOLACTONE
     Dosage: UNK
     Route: 048
  12. SILDENAFIL CITRATE. [Suspect]
     Active Substance: SILDENAFIL CITRATE
     Indication: PULMONARY ARTERIAL HYPERTENSION
     Route: 048
  13. VICTOZA [Suspect]
     Active Substance: LIRAGLUTIDE
     Indication: TYPE 2 DIABETES MELLITUS
     Route: 058
     Dates: end: 20180924
  14. BICARBONATE DE SODIUM AGUETTANT [Concomitant]
     Active Substance: SODIUM BICARBONATE
  15. ACICLOVIR [Concomitant]
     Active Substance: ACYCLOVIR
  16. LASILIX SPECIAL [FUROSEMIDE] [Concomitant]
  17. PRIMPERAN [Concomitant]
     Active Substance: METOCLOPRAMIDE HYDROCHLORIDE
  18. DIFFU K [Concomitant]
     Active Substance: POTASSIUM CHLORIDE
  19. VORICONAZOLE. [Suspect]
     Active Substance: VORICONAZOLE
     Indication: BRONCHOPULMONARY ASPERGILLOSIS
     Route: 042
     Dates: start: 20180919, end: 20180928
  20. ALGINATE DE SODIUM/BICARBONATE DE SODIUM [Concomitant]
  21. DOLIPRANE [Concomitant]
     Active Substance: ACETAMINOPHEN
  22. LANTUS [Suspect]
     Active Substance: INSULIN GLARGINE
     Indication: TYPE 2 DIABETES MELLITUS
     Route: 058
  23. LANTUS [Suspect]
     Active Substance: INSULIN GLARGINE
     Dosage: UNK
     Route: 058
  24. GLICLAZIDE [Suspect]
     Active Substance: GLICLAZIDE
     Indication: TYPE 2 DIABETES MELLITUS
     Dosage: 1 DF, QD
     Route: 048
  25. SEEBRI BREEZHALER [Concomitant]
     Active Substance: GLYCOPYRROLATE
  26. MOVICOL [Concomitant]
     Active Substance: POLYETHYLENE GLYCOL 3350\POTASSIUM CHLORIDE\SODIUM BICARBONATE\SODIUM CHLORIDE
  27. GLUCOSE [Concomitant]
     Active Substance: DEXTROSE

REACTIONS (10)
  - Hepatic failure [Fatal]
  - Renal failure [Fatal]
  - Multiple organ dysfunction syndrome [Fatal]
  - Visual impairment [Fatal]
  - Hypotension [Fatal]
  - Hypoglycaemia [Fatal]
  - Hepatocellular injury [Fatal]
  - Oedema peripheral [Fatal]
  - Nausea [Fatal]
  - Cholestasis [Fatal]

NARRATIVE: CASE EVENT DATE: 20180920
